FAERS Safety Report 4901685-3 (Version None)
Quarter: 2006Q1

REPORT INFORMATION
  Report Type: 
  Country: None (occurrence: None)
  Receive Date: 20060206
  Receipt Date: 20051102
  Transmission Date: 20060701
  Serious: Yes (Hospitalization)
  Sender: FDA-Public Use
  Company Number: US-BRISTOL-MYERS SQUIBB COMPANY-13163969

PATIENT
  Age: 64 Year

DRUGS (9)
  1. CARBOPLATIN [Suspect]
     Dates: start: 20050816
  2. TAXOL [Suspect]
     Dates: start: 20050816
  3. TAGAMET [Concomitant]
     Dosage: 300 MG/100 NS
     Dates: start: 20050816
  4. ALOXI [Concomitant]
     Dates: start: 20050816
  5. SANDOSTATIN [Concomitant]
     Dosage: LAR
     Dates: start: 20050830
  6. NEULASTA [Concomitant]
     Route: 058
     Dates: start: 20050831
  7. VITAMIN K [Concomitant]
     Dates: start: 20050907
  8. ARANESP [Concomitant]
     Dates: start: 20050907
  9. LOVENOX [Concomitant]
     Route: 058
     Dates: start: 20050818, end: 20050822

REACTIONS (2)
  - HOSPITALISATION [None]
  - OEDEMA PERIPHERAL [None]
